FAERS Safety Report 6318635-8 (Version None)
Quarter: 2009Q3

REPORT INFORMATION
  Report Type: 
  Country: None (occurrence: None)
  Receive Date: 20090821
  Receipt Date: 20090811
  Transmission Date: 20100115
  Serious: Yes (Hospitalization)
  Sender: FDA-Public Use
  Company Number: CA-ABBOTT-09P-028-0590808-00

PATIENT
  Sex: Male
  Weight: 68.1 kg

DRUGS (3)
  1. LUPRON DEPOT [Suspect]
     Indication: PROSTATE CANCER
     Route: 050
     Dates: start: 20081222
  2. NEBULIZER AT HOME FOR VENTOLIN [Concomitant]
     Indication: DRUG USE FOR UNKNOWN INDICATION
  3. VENTOLIN [Concomitant]
     Indication: DRUG USE FOR UNKNOWN INDICATION

REACTIONS (2)
  - PULMONARY EMBOLISM [None]
  - PULMONARY OEDEMA [None]
